FAERS Safety Report 6265810-7 (Version None)
Quarter: 2009Q3

REPORT INFORMATION
  Report Type: 
  Country: None (occurrence: None)
  Receive Date: 20090713
  Receipt Date: 20090702
  Transmission Date: 20100115
  Serious: Yes (Disabling)
  Sender: FDA-Public Use
  Company Number: A0795249A

PATIENT
  Sex: Female

DRUGS (2)
  1. ALTABAX [Suspect]
     Route: 061
     Dates: start: 20090627, end: 20090702
  2. NEOSPORIN [Concomitant]

REACTIONS (5)
  - DISCOMFORT [None]
  - FEELING ABNORMAL [None]
  - PAIN [None]
  - RADIATION ASSOCIATED PAIN [None]
  - SWELLING [None]
